FAERS Safety Report 18526024 (Version 1)
Quarter: 2020Q4

REPORT INFORMATION
  Report Type: Report from Study
  Country: None (occurrence: AR)
  Receive Date: 20201120
  Receipt Date: 20201120
  Transmission Date: 20210114
  Serious: Yes (Death, Hospitalization)
  Sender: FDA-Public Use
  Company Number: AR-ABBVIE-20K-007-3657386-00

PATIENT
  Sex: Male

DRUGS (1)
  1. HUMIRA [Suspect]
     Active Substance: ADALIMUMAB
     Indication: RHEUMATOID ARTHRITIS
     Route: 058
     Dates: start: 20190621

REACTIONS (5)
  - Hypophagia [Unknown]
  - Depressed mood [Unknown]
  - Gastrointestinal disorder [Unknown]
  - Swelling [Unknown]
  - Abdominal hernia [Fatal]
